FAERS Safety Report 4586696-2 (Version None)
Quarter: 2005Q1

REPORT INFORMATION
  Report Type: 
  Country: None (occurrence: None)
  Receive Date: 20050214
  Receipt Date: 20050203
  Transmission Date: 20050727
  Serious: Yes (Hospitalization)
  Sender: FDA-Public Use
  Company Number: FRP05000108

PATIENT
  Age: 57 Year
  Sex: Female
  Weight: 54 kg

DRUGS (4)
  1. ACTONEL [Suspect]
     Indication: OSTEOPOROSIS
     Dosage: 5 MG, DAILY, ORAL
     Route: 048
     Dates: start: 20030601
  2. CLIMASTON (ESTRADIOL VALERATE, DYDROGESTERONE) [Suspect]
     Dosage: DAILY, ORAL
     Route: 048
     Dates: start: 20030601, end: 20040723
  3. SYMPATHYL (PEUMUS BOLDUS EXTRACT, PEPTONE, METHENAMINE, PHENOBARBITAL, [Suspect]
     Dosage: ORAL
     Route: 048
  4. CALCIPRAT (CALCIUM CARBONATE) [Suspect]
     Indication: OSTEOPOROSIS
     Dosage: DAILY
     Dates: start: 20030601

REACTIONS (4)
  - CAROTID ARTERY THROMBOSIS [None]
  - CEREBRAL INFARCTION [None]
  - CEREBROVASCULAR ACCIDENT [None]
  - HEMIPLEGIA [None]
